FAERS Safety Report 6599011-X (Version None)
Quarter: 2010Q1

REPORT INFORMATION
  Report Type: 
  Country: None (occurrence: None)
  Receive Date: 20100224
  Receipt Date: 20090728
  Transmission Date: 20100710
  Serious: No
  Sender: FDA-Public Use
  Company Number: US-BRISTOL-MYERS SQUIBB COMPANY-14671937

PATIENT
  Sex: Female

DRUGS (3)
  1. METFORMIN HCL [Suspect]
     Dosage: WHITE ROUND TABLET.METFORMIN HCL EX RELEASE TABLET.
  2. GLIPIZIDE [Suspect]
     Dosage: TINY WHITE TABLET
  3. LEVOTHYROXINE SODIUM [Suspect]
     Dosage: SMALL YELLOW TABLET

REACTIONS (2)
  - DRUG INEFFECTIVE [None]
  - PALPITATIONS [None]
